FAERS Safety Report 9502176 (Version 1)
Quarter: 2013Q3

REPORT INFORMATION
  Report Type: Spontaneous
  Country: NL (occurrence: NL)
  Receive Date: 20130905
  Receipt Date: 20130905
  Transmission Date: 20140515
  Serious: Yes (Death)
  Sender: FDA-Public Use
  Company Number: NL-AMGEN-NLDSP2013062241

PATIENT
  Age: 60 Year
  Sex: Male

DRUGS (11)
  1. XGEVA [Suspect]
     Indication: BONE DISORDER
     Dosage: 120 MG, Q4WK
     Route: 065
     Dates: start: 20130611
  2. PANTOZOL                           /01263204/ [Concomitant]
     Route: 065
  3. VITA B [Concomitant]
     Route: 065
  4. THIAMINE [Concomitant]
     Route: 065
  5. INNOHEP [Concomitant]
     Route: 065
  6. CLOPIDOGREL [Concomitant]
     Route: 065
  7. FENTANYL [Concomitant]
     Route: 065
  8. OXAZEPAM [Concomitant]
     Route: 065
  9. NORTYLINE [Concomitant]
     Route: 065
  10. CAMPRAL [Concomitant]
     Route: 065
  11. NISTATIN [Concomitant]
     Route: 065

REACTIONS (1)
  - Death [Fatal]
